FAERS Safety Report 21087036 (Version 2)
Quarter: 2022Q4

REPORT INFORMATION
  Report Type: Spontaneous
  Country: US (occurrence: US)
  Receive Date: 20220715
  Receipt Date: 20221027
  Transmission Date: 20230113
  Serious: No
  Sender: FDA-Public Use
  Company Number: US-BRISTOL-MYERS SQUIBB COMPANY-2022-067624

PATIENT
  Age: 70 Year
  Sex: Male

DRUGS (2)
  1. POMALYST [Suspect]
     Active Substance: POMALIDOMIDE
     Indication: Plasma cell myeloma refractory
     Route: 048
     Dates: start: 20220623
  2. POMALYST [Suspect]
     Active Substance: POMALIDOMIDE
     Dosage: FREQ - TAKE 1 CAPSULE BY MOUTH EVERY DAY FOR 21 DAYS THEN OFF FOR 7 DAYS EVERY 28 DAY CYCLE.
     Route: 048

REACTIONS (2)
  - Product prescribing issue [Unknown]
  - Hiccups [Unknown]
